FAERS Safety Report 6065972-0 (Version None)
Quarter: 2009Q1

REPORT INFORMATION
  Report Type: 
  Country: None (occurrence: None)
  Receive Date: 20090205
  Receipt Date: 20090202
  Transmission Date: 20090719
  Serious: Yes (Hospitalization, Other)
  Sender: FDA-Public Use
  Company Number: NO-BRISTOL-MYERS SQUIBB COMPANY-14491187

PATIENT
  Age: 44 Year
  Sex: Female

DRUGS (3)
  1. ABILIFY [Suspect]
     Indication: SCHIZOPHRENIA
     Dates: start: 20050407
  2. LAMICTAL [Concomitant]
     Dosage: DOSAGE FORM = 100 MG TABS X 2
     Dates: start: 20041101
  3. SEROQUEL [Concomitant]
     Dosage: FORM = TABS REDUCED STEP BY STEP OVER A PERIOD
     Dates: end: 20050623

REACTIONS (1)
  - APPENDICITIS [None]
